FAERS Safety Report 20788322 (Version 3)
Quarter: 2022Q2

REPORT INFORMATION
  Report Type: Spontaneous
  Country: US (occurrence: None)
  Receive Date: 20220505
  Receipt Date: 20220615
  Transmission Date: 20220720
  Serious: No
  Sender: FDA-Public Use
  Company Number: 2022A164795

PATIENT
  Sex: Female
  Weight: 88.5 kg

DRUGS (1)
  1. TEZSPIRE [Suspect]
     Active Substance: TEZEPELUMAB-EKKO
     Route: 065

REACTIONS (14)
  - Vision blurred [Unknown]
  - Eye pruritus [Unknown]
  - Respiratory rate decreased [Unknown]
  - Dizziness [Unknown]
  - Fall [Unknown]
  - Joint swelling [Unknown]
  - Pain [Unknown]
  - Fatigue [Unknown]
  - Asthenia [Unknown]
  - Dysgeusia [Unknown]
  - Insomnia [Unknown]
  - Lip haemorrhage [Unknown]
  - Erythema [Unknown]
  - Contusion [Unknown]
